FAERS Safety Report 9837347 (Version 1)
Quarter: 2014Q1

REPORT INFORMATION
  Report Type: Spontaneous
  Country: US (occurrence: None)
  Receive Date: 20140117
  Receipt Date: 20140117
  Transmission Date: 20141002
  Serious: Yes (Life-Threatening, Disabling)
  Sender: FDA-Public Use
  Company Number: None

PATIENT
  Age: 52 Year
  Sex: Male
  Weight: 143.34 kg

DRUGS (2)
  1. GLIPIZIDE [Suspect]
     Indication: TYPE 2 DIABETES MELLITUS
     Dosage: 60  ONCE DAILY TAKEN BY MOUTH
     Route: 048
     Dates: start: 20131228
  2. GLUCOTROL [Suspect]
     Dosage: 60  ONCE DAILY  TAKEN BY MOUTH
     Route: 048
     Dates: start: 20131228

REACTIONS (3)
  - Headache [None]
  - Product tampering [None]
  - Unevaluable event [None]
